FAERS Safety Report 23623493 (Version 12)
Quarter: 2025Q4

REPORT INFORMATION
  Report Type: Report from Study
  Country: US (occurrence: US)
  Receive Date: 20240312
  Receipt Date: 20251218
  Transmission Date: 20260117
  Serious: Yes (Hospitalization, Other)
  Sender: TAKEDA
  Company Number: US-TAKEDA-2024TUS022078

PATIENT
  Age: 65 Year
  Sex: Male

DRUGS (4)
  1. MARIBAVIR [Suspect]
     Active Substance: MARIBAVIR
     Indication: Cytomegalovirus infection
     Dosage: 400 MILLIGRAM, BID
     Dates: start: 20240203, end: 20240725
  2. MARIBAVIR [Suspect]
     Active Substance: MARIBAVIR
     Dosage: 400 MILLIGRAM, BID
     Dates: start: 20240813
  3. MARIBAVIR [Suspect]
     Active Substance: MARIBAVIR
     Dosage: 400 MILLIGRAM, BID
     Dates: start: 20240917
  4. MARIBAVIR [Suspect]
     Active Substance: MARIBAVIR
     Dosage: 400 MILLIGRAM, BID

REACTIONS (12)
  - Urinary tract infection [Unknown]
  - Illness [Unknown]
  - Haematological infection [Unknown]
  - Ear infection [Unknown]
  - Dehydration [Unknown]
  - Renal impairment [Recovered/Resolved]
  - Eye disorder [Recovering/Resolving]
  - Retinal disorder [Recovering/Resolving]
  - Headache [Unknown]
  - Fatigue [Unknown]
  - Dysgeusia [Unknown]
  - Product use issue [Unknown]
